FAERS Safety Report 16211928 (Version 1)
Quarter: 2019Q2

REPORT INFORMATION
  Report Type: Spontaneous
  Country: CA (occurrence: CA)
  Receive Date: 20190418
  Receipt Date: 20190418
  Transmission Date: 20190711
  Serious: Yes (Congenital Anomaly, Other)
  Sender: FDA-Public Use
  Company Number: CA-AUROBINDO-AUR-APL-2019-020134

PATIENT

DRUGS (1)
  1. PAROXETINE. [Suspect]
     Active Substance: PAROXETINE
     Indication: DEPRESSION
     Dosage: 20 MILLIGRAM, 1 EVERY 1 DAY(S)
     Route: 064

REACTIONS (8)
  - Cardiac septal defect [Unknown]
  - Hepatomegaly [Unknown]
  - Skull fracture [Unknown]
  - Foetal exposure during pregnancy [Unknown]
  - Heart disease congenital [Unknown]
  - Erythema [Unknown]
  - Angina pectoris [Unknown]
  - Cardiac murmur [Unknown]
